FAERS Safety Report 9208677 (Version 1)
Quarter: 2013Q1

REPORT INFORMATION
  Report Type: Spontaneous
  Country: US (occurrence: None)
  Receive Date: 20120817
  Receipt Date: 20120817
  Transmission Date: 20140127
  Serious: Yes (Hospitalization, Other)
  Sender: FDA-Public Use
  Company Number: ADR-2012-00938

PATIENT
  Age: 56 Year
  Sex: Male

DRUGS (4)
  1. BACLOFEN INTRATHECAL (BACLOFEN INJECTION) [Suspect]
     Indication: PAIN
  2. BACLOFEN INTRATHECAL (BACLOFEN INJECTION) [Suspect]
     Indication: POST LAMINECTOMY SYNDROME
  3. CLONIDINE [Concomitant]
  4. SUFENTANIL [Concomitant]

REACTIONS (2)
  - Back pain [None]
  - Pain in extremity [None]
